FAERS Safety Report 5622061-4 (Version None)
Quarter: 2008Q1

REPORT INFORMATION
  Report Type: 
  Country: None (occurrence: None)
  Receive Date: 20080206
  Receipt Date: 20080131
  Transmission Date: 20080703
  Serious: Yes (Life-Threatening, Hospitalization)
  Sender: FDA-Public Use
  Company Number: 229-C5013-07110763

PATIENT
  Age: 66 Year
  Sex: Male
  Weight: 51.2 kg

DRUGS (2)
  1. CC-5013 (LENALIDOMIDE) (CAPSULES) [Suspect]
     Indication: MULTIPLE MYELOMA
     Dosage: 25 MG, DAILY X21 DAYS OF 28 DAY CYCLE, ORAL
     Route: 048
     Dates: start: 20071102, end: 20071122
  2. DEXAMETHASONE TAB [Suspect]
     Indication: MULTIPLE MYELOMA
     Dosage: 40 MG, DAILY X4 DAYS IN 28 DAYS,ORAL, 14 MG, X1 DAY IN 28 DAYS, ORAL, 4 MG, X1 DAY IN 28 DAYS, ORAL
     Route: 048
     Dates: start: 20071102, end: 20071107

REACTIONS (13)
  - BLOOD ALBUMIN DECREASED [None]
  - BLOOD BILIRUBIN INCREASED [None]
  - BLOOD CALCIUM DECREASED [None]
  - BLOOD CHLORIDE DECREASED [None]
  - BLOOD SODIUM DECREASED [None]
  - BLOOD UREA INCREASED [None]
  - FIBRIN D DIMER INCREASED [None]
  - NEUTROPENIA [None]
  - PNEUMONIA [None]
  - PROTEIN TOTAL DECREASED [None]
  - PULMONARY FIBROSIS [None]
  - RESPIRATORY FAILURE [None]
  - SINUS TACHYCARDIA [None]
